FAERS Safety Report 7360780-2 (Version None)
Quarter: 2011Q1

REPORT INFORMATION
  Report Type: 
  Country: None (occurrence: None)
  Receive Date: 20110318
  Receipt Date: 20110315
  Transmission Date: 20110831
  Serious: Yes (Other)
  Sender: FDA-Public Use
  Company Number: BR-PFIZER INC-2011057818

PATIENT
  Age: 51 Year
  Sex: Male

DRUGS (1)
  1. CAVERJECT [Suspect]
     Route: 017

REACTIONS (1)
  - PROSTATE CANCER [None]
